FAERS Safety Report 7820521-9 (Version None)
Quarter: 2011Q4

REPORT INFORMATION
  Report Type: 
  Country: None (occurrence: None)
  Receive Date: 20111018
  Receipt Date: 20111012
  Transmission Date: 20120403
  Serious: Yes (Other)
  Sender: FDA-Public Use
  Company Number: FR-B.I. PHARMACEUTICALS,INC./RIDGEFIELD-2011-FF-00954FF

PATIENT
  Sex: Female

DRUGS (2)
  1. PROTELOS [Suspect]
     Dates: start: 20050101
  2. MICARDIS [Suspect]
     Route: 048
     Dates: start: 20070101

REACTIONS (7)
  - ASTHENIA [None]
  - IMPAIRED SELF-CARE [None]
  - FRONTOTEMPORAL DEMENTIA [None]
  - MYOSITIS [None]
  - DEMENTIA [None]
  - CHOKING [None]
  - MUSCULAR WEAKNESS [None]
